FAERS Safety Report 9104044 (Version 1)
Quarter: 2013Q1

REPORT INFORMATION
  Report Type: Spontaneous
  Country: US (occurrence: US)
  Receive Date: 20130219
  Receipt Date: 20130219
  Transmission Date: 20140127
  Serious: No
  Sender: FDA-Public Use
  Company Number: US-ASTRAZENECA-2013SE08874

PATIENT
  Sex: Female

DRUGS (3)
  1. SYMBICORT [Suspect]
     Indication: ASTHMA
     Dosage: 640 MCG BID
     Route: 055
     Dates: start: 201212
  2. SYMBICORT [Suspect]
     Indication: ASTHMA
     Dosage: 1 INHALATION UNKNOWN FREQUENCY
     Route: 055
  3. NYSTATIN [Concomitant]

REACTIONS (3)
  - Candida infection [Not Recovered/Not Resolved]
  - Oesophageal disorder [Unknown]
  - Aphagia [Unknown]
